APPROVED DRUG PRODUCT: UTICORT
Active Ingredient: BETAMETHASONE BENZOATE
Strength: 0.025%
Dosage Form/Route: GEL;TOPICAL
Application: N017244 | Product #001
Applicant: PARKE DAVIS DIV WARNER LAMBERT CO
Approved: Approved Prior to Jan 1, 1982 | RLD: No | RS: No | Type: DISCN